FAERS Safety Report 12690853 (Version 2)
Quarter: 2016Q4

REPORT INFORMATION
  Report Type: Report from Study
  Country: ZA (occurrence: ZA)
  Receive Date: 20160826
  Receipt Date: 20161008
  Transmission Date: 20170207
  Serious: Yes (Death, Other)
  Sender: FDA-Public Use
  Company Number: ZA-AMGEN-ZAFSL2016109803

PATIENT
  Age: 48 Year
  Sex: Male
  Weight: 70 kg

DRUGS (1)
  1. ARANESP [Suspect]
     Active Substance: DARBEPOETIN ALFA
     Indication: NEPHROGENIC ANAEMIA
     Dosage: 60 UNK, Q2WK
     Route: 058
     Dates: start: 201511, end: 20160729

REACTIONS (2)
  - Oropharyngeal pain [Unknown]
  - Death [Fatal]

NARRATIVE: CASE EVENT DATE: 20160729
